FAERS Safety Report 17625382 (Version 1)
Quarter: 2020Q2

REPORT INFORMATION
  Report Type: Report from Study
  Country: DE (occurrence: DE)
  Receive Date: 20200403
  Receipt Date: 20200403
  Transmission Date: 20200713
  Serious: Yes (Congenital Anomaly, Other)
  Sender: FDA-Public Use
  Company Number: DE-AUROBINDO-AUR-APL-2020-016251

PATIENT

DRUGS (1)
  1. VALSARTAN. [Suspect]
     Active Substance: VALSARTAN
     Indication: PRODUCT USED FOR UNKNOWN INDICATION
     Dosage: 1 TRIMESTER, IN-UTERO EXPOSURE STARTED SINCE THE CONCEPTION AND CONTINUED UNTIL
     Route: 064

REACTIONS (6)
  - Congenital renal disorder [Unknown]
  - Cranial sutures widening [Unknown]
  - Oligohydramnios [Recovered/Resolved]
  - Muscle contracture [Unknown]
  - Foetal exposure during pregnancy [Unknown]
  - Foetal disorder [Unknown]
